FAERS Safety Report 7391489-7 (Version None)
Quarter: 2011Q2

REPORT INFORMATION
  Report Type: 
  Country: None (occurrence: None)
  Receive Date: 20110404
  Receipt Date: 20091009
  Transmission Date: 20111010
  Serious: Yes (Hospitalization, Other)
  Sender: FDA-Public Use
  Company Number: US-BAYER-200940466NA

PATIENT
  Sex: Male
  Weight: 93 kg

DRUGS (34)
  1. HYDRALAZINE HCL [Concomitant]
     Dosage: 25 MG, TID
     Route: 048
     Dates: start: 20061211, end: 20070114
  2. KLOR-CON [Concomitant]
     Dosage: UNK
     Dates: start: 20061204, end: 20070114
  3. SIMVASTATIN [Concomitant]
     Dosage: UNK
     Dates: start: 20060811, end: 20070114
  4. FENTANYL [Concomitant]
     Dosage: 1000 MCG, CONTINUED IN INTENSIVE CARE
     Route: 042
     Dates: start: 20070115
  5. BUMEX [Concomitant]
     Dosage: INTERMITTENT FOLLOWED BY DRIP
     Route: 042
     Dates: start: 20070116, end: 20070127
  6. INSULIN [INSULIN] [Concomitant]
     Dosage: 4 U, Q1HR
     Route: 042
     Dates: start: 20070115
  7. VERSED [Concomitant]
     Dosage: 8 MG, CONTINUED IN INTENSIVE CARE
     Route: 042
     Dates: start: 20070115
  8. RED BLOOD CELLS [Concomitant]
     Dosage: 2 U, UNK
     Dates: start: 20070115
  9. PANCURONIUM BROMIDE [Concomitant]
     Dosage: 1MG/1M - 10ML
     Route: 042
     Dates: start: 20070115, end: 20070115
  10. ZAROXOLYN [Concomitant]
  11. CONTRAST MEDIA [Concomitant]
     Indication: CATHETERISATION CARDIAC
     Dosage: UNK
     Dates: start: 20061229
  12. CONTRAST MEDIA [Concomitant]
     Dosage: UNK
     Dates: start: 20070126
  13. TRASYLOL [Suspect]
     Indication: CARDIAC ANEURYSM REPAIR
     Dosage: 50 ML/HOUR
     Route: 041
     Dates: start: 20070115, end: 20070115
  14. ACTOS [Concomitant]
     Dosage: UNK
     Dates: start: 20061003, end: 20070114
  15. TOPROL-XL [Concomitant]
     Dosage: UNK
     Dates: start: 20060602, end: 20070114
  16. ARANESP [Concomitant]
     Dosage: 40 MCG, WEEKLY
     Route: 058
  17. MILRINONE [Concomitant]
     Dosage: 0.25 MCG/KG/MIN, TITRATED OFF IN INTENSIVE CARE
     Route: 042
     Dates: start: 20070115
  18. NOREPINEPHRINE BITARTRATE [Concomitant]
     Dosage: 0.08 MCG/KG/MIN, TITRATED OFF IN INTENSIVE CARE
     Route: 042
     Dates: start: 20070115
  19. PLATELETS [Concomitant]
     Dosage: TWO 5-PACKS
     Dates: start: 20070115
  20. TRASYLOL [Suspect]
     Indication: TRICUSPID VALVE REPAIR
     Dosage: 200 ML, LOADING DOSE
     Route: 042
     Dates: start: 20070115, end: 20070115
  21. PROPOFOL [Concomitant]
     Dosage: 40 MCG/KG/MIN, TITRATED OFF IN INTENSIVE CARE
     Route: 042
     Dates: start: 20070115
  22. ALLOPURINOL [Concomitant]
     Dosage: 100 MG, QD
     Route: 048
     Dates: start: 20060425, end: 20070114
  23. FLOMAX [Concomitant]
     Dosage: UNK
     Dates: start: 20060509, end: 20070127
  24. PHENYLEPHRINE [PHENYLEPHRINE] [Concomitant]
     Dosage: 50 ?G, UNK
     Route: 042
     Dates: start: 20070115, end: 20070115
  25. FRESH FROZEN PLASMA [Concomitant]
     Dosage: 2 U, UNK
     Dates: start: 20070115
  26. NITRIC OXIDE [Concomitant]
     Dosage: UNK
     Dates: start: 20070115
  27. BUMETANIDE [Concomitant]
     Dosage: UNK
     Dates: start: 20060905, end: 20070114
  28. ISOSORBIDE [ISOSORBIDE] [Concomitant]
     Dosage: 20 MG, TID
     Route: 048
     Dates: start: 20061211, end: 20070114
  29. TRAZODONE HCL [Concomitant]
     Dosage: UNK
     Dates: start: 20061120, end: 20070114
  30. WARFARIN [Concomitant]
     Dosage: UNK
     Dates: start: 20060903, end: 20070114
  31. INSULIN [INSULIN] [Concomitant]
     Dosage: VARIED DOSES
     Route: 058
     Dates: start: 19950101
  32. TRASYLOL [Suspect]
     Indication: CORONARY ARTERY BYPASS
     Dosage: 1 ML, TEST DOSE
     Route: 042
     Dates: start: 20070115, end: 20070115
  33. LIPITOR [Concomitant]
     Dosage: 80 MG, QD
     Route: 048
  34. DOPAMINE [Concomitant]
     Dosage: UNK
     Route: 041
     Dates: start: 20070201, end: 20070206

REACTIONS (11)
  - RENAL FAILURE [None]
  - INJURY [None]
  - RENAL INJURY [None]
  - PAIN [None]
  - ANXIETY [None]
  - ANHEDONIA [None]
  - RENAL IMPAIRMENT [None]
  - EMOTIONAL DISTRESS [None]
  - STRESS [None]
  - UNEVALUABLE EVENT [None]
  - FEAR [None]
